FAERS Safety Report 9508496 (Version 3)
Quarter: 2013Q4

REPORT INFORMATION
  Report Type: Spontaneous
  Country: US (occurrence: US)
  Receive Date: 20130909
  Receipt Date: 20131115
  Transmission Date: 20140711
  Serious: Yes (Hospitalization, Other)
  Sender: FDA-Public Use
  Company Number: US-PFIZER INC-2013257139

PATIENT
  Age: 44 Year
  Sex: Female
  Weight: 107 kg

DRUGS (13)
  1. XELJANZ [Suspect]
     Indication: RHEUMATOID ARTHRITIS
     Dosage: 5 MG, 2X/DAY
     Route: 048
     Dates: start: 20130901
  2. XELJANZ [Suspect]
     Dosage: UNK
     Dates: start: 20131029
  3. PERCOCET [Concomitant]
     Dosage: UNK
  4. PREDNISONE [Concomitant]
     Dosage: UNK
  5. OMEPRAZOLE DR [Concomitant]
     Dosage: UNK
  6. PRAVASTATIN [Concomitant]
     Dosage: UNK
  7. ZOLPIDEM [Concomitant]
     Dosage: UNK
  8. GLIPIZIDE [Concomitant]
     Dosage: UNK
  9. VITAMIN B6 [Concomitant]
     Dosage: UNK
  10. CARISOPRODOL [Concomitant]
     Dosage: UNK
  11. METFORMIN [Concomitant]
     Dosage: 500 MG, (2 TABS IN MORNING AND ONE TAB IN EVENING, BEDTIME)
  12. NOVOLOG [Concomitant]
     Dosage: 10 IU, 3X/DAY
     Route: 058
  13. LANTUS [Concomitant]
     Dosage: 40 IU, UNK
     Route: 058

REACTIONS (11)
  - Blood glucose increased [Unknown]
  - Diabetes mellitus [Unknown]
  - Somnolence [Unknown]
  - Fatigue [Unknown]
  - Therapeutic response unexpected [Unknown]
  - Oropharyngeal pain [Unknown]
  - Glossodynia [Unknown]
  - Sinus headache [Unknown]
  - Local swelling [Unknown]
  - Pollakiuria [Unknown]
  - Vision blurred [Not Recovered/Not Resolved]
